FAERS Safety Report 4663225-6 (Version None)
Quarter: 2005Q2

REPORT INFORMATION
  Report Type: 
  Country: None (occurrence: None)
  Receive Date: 20050513
  Receipt Date: 20050505
  Transmission Date: 20051028
  Serious: Yes (Disabling, Other)
  Sender: FDA-Public Use
  Company Number: 2005070819

PATIENT
  Sex: Female
  Weight: 54.4316 kg

DRUGS (5)
  1. LIPITOR [Suspect]
     Indication: HYPERTENSION
  2. VALPROATE SODIUM [Concomitant]
  3. PAROXETINE HCL [Concomitant]
  4. TRAZODONE HCL [Concomitant]
  5. ANTIEMETICS AND ANTINAUSEANTS (ANTIEMETICS AND ANTINAUSEANTS) [Concomitant]

REACTIONS (16)
  - ABDOMINAL DISTENSION [None]
  - ASCITES [None]
  - BLOOD PRESSURE DECREASED [None]
  - COLONIC POLYP [None]
  - CONVULSION [None]
  - DIARRHOEA [None]
  - EPISTAXIS [None]
  - HAEMORRHOIDS [None]
  - HEPATIC CIRRHOSIS [None]
  - HEPATOCELLULAR DAMAGE [None]
  - HYPERSENSITIVITY [None]
  - ILL-DEFINED DISORDER [None]
  - MOVEMENT DISORDER [None]
  - PLATELET COUNT INCREASED [None]
  - VIRAL INFECTION [None]
  - VOMITING [None]
